FAERS Safety Report 4642086-5 (Version None)
Quarter: 2005Q2

REPORT INFORMATION
  Report Type: 
  Country: None (occurrence: None)
  Receive Date: 20050421
  Receipt Date: 20050421
  Transmission Date: 20051028
  Serious: Yes (Life-Threatening)
  Sender: FDA-Public Use
  Company Number: None

PATIENT
  Age: 63 Year
  Sex: Female

DRUGS (1)
  1. THYROID TAB [Suspect]
     Dosage: 1 PILL DAILY    MONTHS
     Dates: start: 20050406

REACTIONS (6)
  - INTESTINAL FUNCTIONAL DISORDER [None]
  - MALAISE [None]
  - PHARMACEUTICAL PRODUCT COMPLAINT [None]
  - SWELLING [None]
  - SWELLING FACE [None]
  - THYROID DISORDER [None]
